FAERS Safety Report 4999538-8 (Version None)
Quarter: 2006Q2

REPORT INFORMATION
  Report Type: 
  Country: None (occurrence: None)
  Receive Date: 20060511
  Receipt Date: 20051019
  Transmission Date: 20061013
  Serious: Yes (Hospitalization, Other)
  Sender: FDA-Public Use
  Company Number: US-MERCK-0510USA08322

PATIENT
  Age: 64 Year
  Sex: Female
  Weight: 61 kg

DRUGS (11)
  1. VIOXX [Suspect]
     Indication: ARTHRITIS
     Route: 048
     Dates: start: 20020125, end: 20040709
  2. CARDIZEM [Concomitant]
     Route: 065
  3. ALLOPURINOL [Concomitant]
     Route: 065
  4. ASPIRIN [Concomitant]
     Route: 065
     Dates: start: 19910101
  5. ATENOLOL [Concomitant]
     Route: 065
  6. CARTIA (DILTIAZEM HYDROCHLORIDE) [Concomitant]
     Route: 065
  7. FAMOTIDINE [Concomitant]
     Route: 065
  8. PLAVIX [Concomitant]
     Route: 065
  9. PREMARIN [Concomitant]
     Route: 065
  10. ZETIA [Concomitant]
     Route: 048
  11. ZOCOR [Concomitant]
     Route: 048
     Dates: start: 19910101, end: 20041007

REACTIONS (29)
  - ANGINA PECTORIS [None]
  - ANXIETY [None]
  - ATRIAL FIBRILLATION [None]
  - BLOOD GLUCOSE ABNORMAL [None]
  - CARDIAC FLUTTER [None]
  - CAROTID ARTERY STENOSIS [None]
  - CHEST PAIN [None]
  - CHRONIC OBSTRUCTIVE PULMONARY DISEASE [None]
  - CHRONIC SINUSITIS [None]
  - COLITIS COLLAGENOUS [None]
  - CORONARY ARTERY DISEASE [None]
  - DEPRESSION [None]
  - DIVERTICULUM [None]
  - DYSPEPSIA [None]
  - DYSPNOEA [None]
  - EMOTIONAL DISTRESS [None]
  - FATIGUE [None]
  - HYPERSENSITIVITY [None]
  - HYPERTENSION [None]
  - INTERMITTENT CLAUDICATION [None]
  - METABOLIC ACIDOSIS [None]
  - MYOCARDIAL INFARCTION [None]
  - MYOCARDIAL ISCHAEMIA [None]
  - PALPITATIONS [None]
  - PERIPHERAL VASCULAR DISORDER [None]
  - SNORING [None]
  - SUBCLAVIAN STEAL SYNDROME [None]
  - VENTRICULAR DYSFUNCTION [None]
  - VITAMIN B12 DEFICIENCY [None]
